FAERS Safety Report 20775246 (Version 2)
Quarter: 2022Q2

REPORT INFORMATION
  Report Type: Report from Study
  Country: US (occurrence: US)
  Receive Date: 20220502
  Receipt Date: 20220606
  Transmission Date: 20220721
  Serious: Yes (Other)
  Sender: FDA-Public Use
  Company Number: US-ABBVIE-22K-163-4339420-00

PATIENT
  Age: 56 Year
  Sex: Female

DRUGS (5)
  1. HUMIRA [Suspect]
     Active Substance: ADALIMUMAB
     Indication: Rheumatoid arthritis
     Route: 058
  2. MODERNA COVID-19 VACCINE [Suspect]
     Active Substance: ELASOMERAN
     Indication: COVID-19 immunisation
     Dosage: FIRST DOSE
     Route: 030
     Dates: start: 20210221, end: 20210221
  3. MODERNA COVID-19 VACCINE [Suspect]
     Active Substance: ELASOMERAN
     Dosage: SECOND DOSE
     Route: 030
     Dates: start: 20210321, end: 20210321
  4. MODERNA COVID-19 VACCINE [Suspect]
     Active Substance: ELASOMERAN
     Dosage: THIRD DOSE
     Route: 030
     Dates: start: 20211122, end: 20211122
  5. MODERNA COVID-19 VACCINE [Suspect]
     Active Substance: ELASOMERAN
     Dosage: BOOSTER SECOND DOSE
     Route: 030
     Dates: start: 202204, end: 202204

REACTIONS (14)
  - Colon injury [Unknown]
  - Abdominal abscess [Unknown]
  - Appendicectomy [Unknown]
  - Biliary tract disorder [Unknown]
  - Head discomfort [Unknown]
  - Thermal burn [Unknown]
  - Depression [Not Recovered/Not Resolved]
  - Vaccination site pain [Recovered/Resolved]
  - Vaccination site pain [Recovered/Resolved]
  - Vaccination site pain [Recovered/Resolved]
  - Vaccination site pain [Recovered/Resolved]
  - Biliary colic [Unknown]
  - Arthralgia [Unknown]
  - Diarrhoea [Unknown]

NARRATIVE: CASE EVENT DATE: 20210201
